FAERS Safety Report 4602577-X (Version None)
Quarter: 2005Q1

REPORT INFORMATION
  Report Type: 
  Country: None (occurrence: None)
  Receive Date: 20050307
  Receipt Date: 20050217
  Transmission Date: 20050727
  Serious: Yes (Other)
  Sender: FDA-Public Use
  Company Number: DE-2005-000364

PATIENT
  Age: 37 Year
  Sex: Female

DRUGS (1)
  1. MIRENA [Suspect]
     Indication: CONTRACEPTION
     Dosage: 20 UG/DAY, CONT, INTRA-UTERINE
     Route: 015
     Dates: start: 20030201

REACTIONS (5)
  - BLOOD PROLACTIN INCREASED [None]
  - DEPRESSED MOOD [None]
  - GALACTORRHOEA [None]
  - HALLUCINATION [None]
  - PSYCHOTIC DISORDER [None]
